FAERS Safety Report 5324144-5 (Version None)
Quarter: 2007Q2

REPORT INFORMATION
  Report Type: 
  Country: None (occurrence: None)
  Receive Date: 20070514
  Receipt Date: 20070202
  Transmission Date: 20071010
  Serious: No
  Sender: FDA-Public Use
  Company Number: A0638167A

PATIENT
  Age: 65 Year
  Sex: Female

DRUGS (1)
  1. NABUMETONE [Suspect]
     Indication: OSTEOARTHRITIS
     Dosage: 750MG TWICE PER DAY
     Route: 048
     Dates: start: 20070130

REACTIONS (2)
  - DRUG INEFFECTIVE [None]
  - STOMACH DISCOMFORT [None]
